FAERS Safety Report 7748119-1 (Version None)
Quarter: 2011Q3

REPORT INFORMATION
  Report Type: 
  Country: None (occurrence: None)
  Receive Date: 20110913
  Receipt Date: 20110824
  Transmission Date: 20111222
  Serious: No
  Sender: FDA-Public Use
  Company Number: US-B.I. PHARMACEUTICALS,INC./RIDGEFIELD-2011-BP-18352BP

PATIENT
  Sex: Female

DRUGS (1)
  1. MIRAPEX [Suspect]
     Indication: PARKINSON'S DISEASE
     Dosage: 0.5MG TID WEANING DOSE 0.5MG BID X 1 WEEK, THEN 0.5MG X 1 WEEK
     Route: 048
     Dates: start: 20071217, end: 20110601

REACTIONS (10)
  - DEPRESSION [None]
  - PATHOLOGICAL GAMBLING [None]
  - ABDOMINAL DISTENSION [None]
  - STRESS [None]
  - BACK PAIN [None]
  - INTERVERTEBRAL DISC PROTRUSION [None]
  - SELF ESTEEM DECREASED [None]
  - INSOMNIA [None]
  - HYPERPHAGIA [None]
  - ABNORMAL WEIGHT GAIN [None]
